FAERS Safety Report 19240191 (Version 2)
Quarter: 2021Q2

REPORT INFORMATION
  Report Type: Spontaneous
  Country: JP (occurrence: JP)
  Receive Date: 20210510
  Receipt Date: 20210615
  Transmission Date: 20210717
  Serious: No
  Sender: FDA-Public Use
  Company Number: JP-BAUSCH-BL-2021-016073

PATIENT
  Age: 80 Year
  Sex: Female

DRUGS (1)
  1. MIKELAN LA OPHTHALMIC SOLUTION USP 1% [Suspect]
     Active Substance: CARTEOLOL HYDROCHLORIDE
     Indication: GLAUCOMA
     Route: 047

REACTIONS (1)
  - Dermatitis contact [Unknown]

NARRATIVE: CASE EVENT DATE: 20210426
